FAERS Safety Report 5526729-X (Version None)
Quarter: 2007Q4

REPORT INFORMATION
  Report Type: 
  Country: None (occurrence: None)
  Receive Date: 20071120
  Receipt Date: 20070827
  Transmission Date: 20080405
  Serious: Yes (Other)
  Sender: FDA-Public Use
  Company Number: 2007051969

PATIENT
  Age: 52 Year
  Sex: Male
  Weight: 94.3482 kg

DRUGS (3)
  1. TIKOSYN [Suspect]
     Dosage: 1000 MCG (500 MCG,2 IN 1 D)
     Dates: start: 20070620, end: 20070601
  2. COUMADIN [Concomitant]
  3. LOVASTATIN [Concomitant]

REACTIONS (1)
  - ELECTROCARDIOGRAM QT PROLONGED [None]
